FAERS Safety Report 15539876 (Version 2)
Quarter: 2018Q4

REPORT INFORMATION
  Report Type: Spontaneous
  Country: CA (occurrence: CA)
  Receive Date: 20181023
  Receipt Date: 20181130
  Transmission Date: 20190205
  Serious: Yes (Other)
  Sender: FDA-Public Use
  Company Number: CA-AUROBINDO-AUR-APL-2018-050758

PATIENT
  Age: 13 Year
  Sex: Female
  Weight: 42 kg

DRUGS (1)
  1. AURO-LEVETIRACETAM TABLET [Suspect]
     Active Substance: LEVETIRACETAM
     Indication: EPILEPSY
     Dosage: 1500 MILLIGRAM, TWO TIMES A DAY
     Route: 048

REACTIONS (1)
  - Seizure [Unknown]
